FAERS Safety Report 20258435 (Version 2)
Quarter: 2022Q1

REPORT INFORMATION
  Report Type: Spontaneous
  Country: US (occurrence: US)
  Receive Date: 20211230
  Receipt Date: 20220225
  Transmission Date: 20220423
  Serious: Yes (Hospitalization, Other)
  Sender: FDA-Public Use
  Company Number: US-TEVA-2021-US-1994269

PATIENT
  Age: 67 Year
  Sex: Female
  Weight: 136.99 kg

DRUGS (27)
  1. VALSARTAN [Suspect]
     Active Substance: VALSARTAN
     Indication: Hypertension
     Dosage: 320 MILLIGRAM DAILY; 1 TABLET QD
     Route: 048
     Dates: start: 20160511, end: 20160804
  2. HYDROCHLOROTHIAZIDE\VALSARTAN [Suspect]
     Active Substance: HYDROCHLOROTHIAZIDE\VALSARTAN
     Indication: Hypertension
     Dosage: DOSAGE: 320/25MG, 1 TABLET DAILY
     Route: 048
     Dates: start: 20130510, end: 20140128
  3. HYDROCHLOROTHIAZIDE\VALSARTAN [Suspect]
     Active Substance: HYDROCHLOROTHIAZIDE\VALSARTAN
     Indication: Hypertension
     Dosage: DOSAGE: 320/25MG, 1 TAB DAILY
     Route: 048
     Dates: start: 20140329, end: 20140530
  4. VALSARTAN [Suspect]
     Active Substance: VALSARTAN
     Indication: Hypertension
     Dosage: 1/2 TAB
     Route: 048
     Dates: start: 20140729, end: 20141124
  5. VALSARTAN [Suspect]
     Active Substance: VALSARTAN
     Indication: Hypertension
     Dosage: 320MG, 1/2 TABLET BY MOUTH EVERY MORNING
     Route: 048
     Dates: start: 20141125, end: 20160213
  6. VALSARTAN [Suspect]
     Active Substance: VALSARTAN
     Route: 048
     Dates: start: 20160214, end: 20160510
  7. VALSARTAN [Suspect]
     Active Substance: VALSARTAN
     Indication: Hypertension
     Dosage: 320MG, 1/2 TAB EVERY MORNING
     Route: 048
     Dates: start: 20160805, end: 20161017
  8. VALSARTAN [Suspect]
     Active Substance: VALSARTAN
     Dosage: 320MG, 1 TABLET DAILY
     Route: 048
     Dates: start: 20161018, end: 20161121
  9. VALSARTAN [Suspect]
     Active Substance: VALSARTAN
     Dosage: 1 TAB BY MOUTH DAILY
     Route: 048
     Dates: start: 20161122, end: 20170221
  10. VALSARTAN [Suspect]
     Active Substance: VALSARTAN
     Dosage: 1 TAB BY MOUTH DAILY
     Route: 048
     Dates: start: 20170222, end: 20180214
  11. VALSARTAN [Suspect]
     Active Substance: VALSARTAN
     Dosage: 1 TAB BY MOUTH DAILY
     Route: 048
     Dates: start: 20180215, end: 20180329
  12. VALSARTAN [Suspect]
     Active Substance: VALSARTAN
     Dosage: 1 TAB BY MOUTH DAILY
     Route: 048
     Dates: start: 20180330, end: 20180729
  13. METHOTREXATE [Concomitant]
     Active Substance: METHOTREXATE
     Indication: Rheumatoid arthritis
     Dosage: 2.5MG, TAKE 6 TAB ONCE EVERY WEEK, UNTIL PRESENT
     Dates: start: 20080623
  14. Cartia [Concomitant]
     Indication: Hypertension
     Dosage: 240 MG ONCE DAILY
     Dates: start: 20080529, end: 20140430
  15. BUMETANIDE [Concomitant]
     Active Substance: BUMETANIDE
     Indication: Hypertension
     Dosage: 2 MG, 2 TABS DAILY UNTIL PRESENT
     Dates: start: 20090707
  16. ALLOPURINOL [Concomitant]
     Active Substance: ALLOPURINOL
     Indication: Nephrolithiasis
     Dosage: 300MG ONCE DAILY UNTIL PRESENT
     Dates: start: 20080111
  17. BENICAR HCT [Concomitant]
     Active Substance: HYDROCHLOROTHIAZIDE\OLMESARTAN MEDOXOMIL
     Indication: Hypertension
     Dosage: 40 MG ONCE DAILY
     Dates: start: 20071108, end: 20100111
  18. CRESTOR [Concomitant]
     Active Substance: ROSUVASTATIN CALCIUM
     Indication: Blood cholesterol increased
     Dosage: 20MG ONCE DAILY
     Dates: start: 20080629, end: 20091101
  19. Tramadol/ APAP [Concomitant]
     Indication: Pain
     Dosage: 37.5 MG, 1 PILL 2TIMES DAILY
     Dates: start: 20080825, end: 20090115
  20. FOLIC ACID [Concomitant]
     Active Substance: FOLIC ACID
     Indication: Anaemia
     Dosage: 1 MG ONCE DAILY UNTIL PRESENT
     Dates: start: 20100827
  21. SIMVASTATIN [Concomitant]
     Active Substance: SIMVASTATIN
     Indication: Blood cholesterol increased
     Dosage: 20 MG ONCE DAILY
     Dates: start: 20100214, end: 20110729
  22. PREDNISONE [Concomitant]
     Active Substance: PREDNISONE
     Indication: Rheumatoid arthritis
     Dosage: 2.5 MG, 2 TABS DAILY UNTIL PRESENT
     Dates: start: 20100713
  23. DIOVAN HCT [Concomitant]
     Active Substance: HYDROCHLOROTHIAZIDE\VALSARTAN
     Indication: Hypertension
     Dosage: 320/25 MG ONCE DAILY
     Dates: start: 20100214, end: 20130509
  24. OXAPROZIN [Concomitant]
     Active Substance: OXAPROZIN
     Indication: Rheumatoid arthritis
     Dosage: 600 MG, 1 TAB TWICE DAILY
     Dates: start: 20100524, end: 20101120
  25. METFORMIN [Concomitant]
     Active Substance: METFORMIN HYDROCHLORIDE
     Indication: Hypertension
     Dosage: 500MG ONCE DAILY
     Dates: start: 20100930, end: 20130919
  26. FENOFIBRATE [Concomitant]
     Active Substance: FENOFIBRATE
     Indication: Blood cholesterol increased
     Dosage: 145MG ONCE DAILY UNTIL PRESENT
     Dates: start: 20130401
  27. ZOLPIDEM [Concomitant]
     Active Substance: ZOLPIDEM TARTRATE
     Indication: Sleep disorder
     Dosage: 5MG, 1-2TABS AT BEDTIME
     Dates: start: 20130410, end: 20131009

REACTIONS (2)
  - Renal cancer [Unknown]
  - Rheumatoid arthritis [Unknown]
